FAERS Safety Report 18981593 (Version 1)
Quarter: 2021Q1

REPORT INFORMATION
  Report Type: Spontaneous
  Country: US (occurrence: US)
  Receive Date: 20210308
  Receipt Date: 20210308
  Transmission Date: 20210420
  Serious: Yes (Life-Threatening)
  Sender: FDA-Public Use
  Company Number: None

PATIENT
  Age: 46 Year
  Sex: Male

DRUGS (1)
  1. BAMLANIVIMAB. [Suspect]
     Active Substance: BAMLANIVIMAB
     Indication: COVID-19
     Dates: start: 20210205, end: 20210305

REACTIONS (11)
  - Dyspnoea [None]
  - Nausea [None]
  - Wheezing [None]
  - Chills [None]
  - Myalgia [None]
  - Dizziness [None]
  - Pneumonia [None]
  - Drug ineffective [None]
  - Pyrexia [None]
  - Headache [None]
  - Urticaria [None]

NARRATIVE: CASE EVENT DATE: 20210205
